FAERS Safety Report 6241600-6 (Version None)
Quarter: 2009Q2

REPORT INFORMATION
  Report Type: 
  Country: None (occurrence: None)
  Receive Date: 20090623
  Receipt Date: 20090610
  Transmission Date: 20091009
  Serious: Yes (Other)
  Sender: FDA-Public Use
  Company Number: AU-ELI_LILLY_AND_COMPANY-AU200904005513

PATIENT
  Age: 45 Year
  Sex: Female

DRUGS (10)
  1. CYMBALTA [Suspect]
     Indication: DEPRESSION
     Dosage: 30 MG, DAILY (1/D)
     Route: 048
     Dates: start: 20090724
  2. CYMBALTA [Suspect]
     Dosage: 60 MG, UNKNOWN
     Route: 065
  3. CYMBALTA [Suspect]
     Dosage: 90 MG, UNKNOWN
     Route: 065
     Dates: end: 20090430
  4. PREDNISOLONE [Concomitant]
     Indication: MYALGIA
     Dosage: 20 MG, UNK
  5. CHLORPROMAZINE [Concomitant]
  6. PROMETHAZINE [Concomitant]
  7. ACETAMINOPHEN AND CODEINE PHOSPHATE [Concomitant]
     Indication: MIGRAINE
  8. NEXIUM [Concomitant]
  9. GAVISCON                                /GFR/ [Concomitant]
  10. DIAFORMIN [Concomitant]

REACTIONS (3)
  - ALANINE AMINOTRANSFERASE INCREASED [None]
  - ASPARTATE AMINOTRANSFERASE INCREASED [None]
  - RED BLOOD CELL SEDIMENTATION RATE INCREASED [None]
